FAERS Safety Report 8052709-9 (Version None)
Quarter: 2012Q1

REPORT INFORMATION
  Report Type: 
  Country: None (occurrence: None)
  Receive Date: 20120118
  Receipt Date: 20120118
  Transmission Date: 20120608
  Serious: Yes (Hospitalization)
  Sender: FDA-Public Use
  Company Number: None

PATIENT
  Sex: Female
  Weight: 93.44 kg

DRUGS (1)
  1. SEROQUEL [Suspect]
     Indication: BIPOLAR DISORDER
     Dosage: 100MG
     Route: 048
     Dates: start: 20120116, end: 20120117

REACTIONS (5)
  - SYNCOPE [None]
  - FALL [None]
  - HEAD INJURY [None]
  - INJURY [None]
  - JOINT INJURY [None]
